FAERS Safety Report 6517816-8 (Version None)
Quarter: 2009Q4

REPORT INFORMATION
  Report Type: 
  Country: None (occurrence: None)
  Receive Date: 20091218
  Receipt Date: 20091211
  Transmission Date: 20100525
  Serious: No
  Sender: FDA-Public Use
  Company Number: TPA2009A04155

PATIENT
  Age: 72 Year
  Sex: Male
  Weight: 104.3 kg

DRUGS (3)
  1. PREVPAC [Suspect]
     Indication: GASTROINTESTINAL BACTERIAL INFECTION
     Dosage: 0.5 CARD, GAM + QPM, PER ORAL
     Route: 048
     Dates: start: 20091208
  2. LIPITOR [Concomitant]
  3. ASPIRIN [Concomitant]

REACTIONS (4)
  - FATIGUE [None]
  - HOT FLUSH [None]
  - HYPERHIDROSIS [None]
  - VISION BLURRED [None]
